FAERS Safety Report 9748520 (Version 1)
Quarter: 2013Q4

REPORT INFORMATION
  Report Type: Spontaneous
  Country: US (occurrence: None)
  Receive Date: 20131209
  Receipt Date: 20131209
  Transmission Date: 20140711
  Serious: Yes (Other)
  Sender: FDA-Public Use
  Company Number: US-MDCO-13-00049

PATIENT
  Age: 72 Year
  Sex: Male

DRUGS (5)
  1. ANGIOMAX [Suspect]
     Indication: PERCUTANEOUS CORONARY INTERVENTION
     Route: 040
  2. ASA [Concomitant]
  3. PLAVIX [Concomitant]
  4. HEPARIN [Concomitant]
  5. AGGRASTAT [Concomitant]

REACTIONS (2)
  - Coronary artery thrombosis [None]
  - Post procedural complication [None]
